FAERS Safety Report 6327554-2 (Version None)
Quarter: 2009Q3

REPORT INFORMATION
  Report Type: 
  Country: None (occurrence: None)
  Receive Date: 20090825
  Receipt Date: 20090812
  Transmission Date: 20100115
  Serious: Yes (Other)
  Sender: FDA-Public Use
  Company Number: US-ELI_LILLY_AND_COMPANY-US200908003209

PATIENT
  Sex: Female

DRUGS (3)
  1. CYMBALTA [Suspect]
     Indication: DEPRESSION
     Dosage: 60 MG, UNK
     Route: 048
     Dates: start: 20081101, end: 20090101
  2. INDERAL [Concomitant]
     Indication: ANXIETY
     Dates: start: 20090101
  3. CONTRACEPTIVES NOS [Concomitant]
     Indication: ORAL CONTRACEPTION

REACTIONS (4)
  - ARTERY DISSECTION [None]
  - BLOOD PRESSURE INCREASED [None]
  - CEREBROVASCULAR ACCIDENT [None]
  - DRUG INEFFECTIVE [None]
